FAERS Safety Report 7000738-6 (Version None)
Quarter: 2010Q3

REPORT INFORMATION
  Report Type: 
  Country: None (occurrence: None)
  Receive Date: 20100920
  Receipt Date: 20100520
  Transmission Date: 20110219
  Serious: No
  Sender: FDA-Public Use
  Company Number: US-ASTRAZENECA-2010SE23360

PATIENT
  Age: 39 Year
  Sex: Female
  Weight: 59.4 kg

DRUGS (1)
  1. SEROQUEL XR [Suspect]
     Indication: BIPOLAR DISORDER
     Route: 048
     Dates: start: 20100513

REACTIONS (4)
  - DRUG INEFFECTIVE [None]
  - MOOD SWINGS [None]
  - NERVOUSNESS [None]
  - SLEEP DISORDER [None]
